FAERS Safety Report 8426493-0 (Version None)
Quarter: 2012Q2

REPORT INFORMATION
  Report Type: 
  Country: None (occurrence: None)
  Receive Date: 20120323
  Receipt Date: 20110802
  Transmission Date: 20120825
  Serious: Yes (Other)
  Sender: FDA-Public Use
  Company Number: 163-21880-11080540

PATIENT
  Age: 84 Year
  Sex: Female

DRUGS (7)
  1. LEVOTHROID [Concomitant]
  2. LOSARTAN POTASSIUM [Concomitant]
  3. FAMOTIDINE [Concomitant]
  4. REVLIMID [Suspect]
     Indication: MYELODYSPLASTIC SYNDROME
     Dosage: 5 MG, DAILY X 21D/28D, PO
     Route: 048
     Dates: start: 20110601, end: 20110623
  5. PREMARIN [Concomitant]
  6. ALPRAZOLAM [Concomitant]
  7. HYOSCYAMINE (HYOSCYAMINE) [Concomitant]

REACTIONS (2)
  - FATIGUE [None]
  - THROMBOCYTOPENIA [None]
